FAERS Safety Report 6825565-1 (Version None)
Quarter: 2010Q3

REPORT INFORMATION
  Report Type: 
  Country: None (occurrence: None)
  Receive Date: 20100708
  Receipt Date: 20071008
  Transmission Date: 20110219
  Serious: No
  Sender: FDA-Public Use
  Company Number: US-PFIZER INC-2006151900

PATIENT

DRUGS (3)
  1. CHANTIX [Suspect]
     Indication: EX-TOBACCO USER
  2. AMBIEN [Suspect]
  3. DITROPAN [Suspect]

REACTIONS (5)
  - FATIGUE [None]
  - FEELING ABNORMAL [None]
  - HYPERVENTILATION [None]
  - NAUSEA [None]
  - POLLAKIURIA [None]
